FAERS Safety Report 11530169 (Version 1)
Quarter: 2015Q3

REPORT INFORMATION
  Report Type: Spontaneous
  Country: US (occurrence: None)
  Receive Date: 20150918
  Receipt Date: 20150918
  Transmission Date: 20151125
  Serious: Yes (Other)
  Sender: FDA-Public Use
  Company Number: None

PATIENT
  Age: 87 Year
  Sex: Male
  Weight: 88 kg

DRUGS (4)
  1. HEPARIN [Suspect]
     Active Substance: HEPARIN SODIUM
     Indication: CATHETERISATION CARDIAC
     Dosage: 6000 UNITS ONE TIME INTRAVENOUS
     Route: 042
     Dates: start: 20150508, end: 20150508
  2. FENTANYL. [Concomitant]
     Active Substance: FENTANYL
  3. LIDOCAINE. [Concomitant]
     Active Substance: LIDOCAINE
  4. VERSED [Concomitant]
     Active Substance: MIDAZOLAM HYDROCHLORIDE

REACTIONS (2)
  - Coagulopathy [None]
  - Product quality issue [None]

NARRATIVE: CASE EVENT DATE: 20150509
